FAERS Safety Report 8010105-4 (Version None)
Quarter: 2011Q4

REPORT INFORMATION
  Report Type: 
  Country: None (occurrence: None)
  Receive Date: 20111228
  Receipt Date: 20111219
  Transmission Date: 20120403
  Serious: Yes (Hospitalization)
  Sender: FDA-Public Use
  Company Number: FR-BRISTOL-MYERS SQUIBB COMPANY-16307720

PATIENT
  Age: 87 Year
  Sex: Female

DRUGS (5)
  1. NEXIUM [Suspect]
     Route: 048
     Dates: start: 20100701, end: 20101201
  2. COUMADIN [Suspect]
     Route: 048
     Dates: start: 20100701, end: 20101201
  3. PROPRANOLOL [Suspect]
     Route: 048
     Dates: start: 20100701, end: 20101201
  4. LERCANIDIPINE [Suspect]
     Route: 048
     Dates: end: 20101201
  5. HYPERIUM [Suspect]
     Route: 048
     Dates: end: 20101201

REACTIONS (1)
  - THROMBOCYTOPENIA [None]
